FAERS Safety Report 5826209-8 (Version None)
Quarter: 2008Q3

REPORT INFORMATION
  Report Type: 
  Country: None (occurrence: None)
  Receive Date: 20080729
  Receipt Date: 20080722
  Transmission Date: 20090109
  Serious: Yes (Other)
  Sender: FDA-Public Use
  Company Number: AR-ABBOTT-08P-007-0442949-00

PATIENT
  Sex: Female
  Weight: 55 kg

DRUGS (2)
  1. HUMIRA [Suspect]
     Indication: RHEUMATOID ARTHRITIS
     Route: 058
     Dates: start: 20071018, end: 20071101
  2. PANTOPRAZOLE SODIUM [Concomitant]
     Indication: PROPHYLAXIS AGAINST GASTROINTESTINAL ULCER
     Route: 050
     Dates: start: 20060201

REACTIONS (3)
  - CUTANEOUS VASCULITIS [None]
  - GUTTATE PSORIASIS [None]
  - STEVENS-JOHNSON SYNDROME [None]
